FAERS Safety Report 6863513-9 (Version None)
Quarter: 2010Q3

REPORT INFORMATION
  Report Type: 
  Country: None (occurrence: None)
  Receive Date: 20100721
  Receipt Date: 20100709
  Transmission Date: 20110219
  Serious: Yes (Hospitalization, Disabling, Other)
  Sender: FDA-Public Use
  Company Number: DE-PFIZER INC-2010047060

PATIENT
  Age: 30 Year
  Sex: Male
  Weight: 79 kg

DRUGS (3)
  1. LYRICA [Suspect]
     Indication: STRESS
     Dosage: 75 MG, 2X/DAY
     Route: 048
     Dates: start: 20091001, end: 20100104
  2. LYRICA [Suspect]
     Indication: PSYCHOSOMATIC DISEASE
  3. LYRICA [Suspect]
     Indication: HEADACHE

REACTIONS (11)
  - ACCOMMODATION DISORDER [None]
  - DIPLOPIA [None]
  - DIZZINESS [None]
  - DRY EYE [None]
  - EYE PAIN [None]
  - PHOTOPHOBIA [None]
  - SICCA SYNDROME [None]
  - SOMNOLENCE [None]
  - VISION BLURRED [None]
  - VISUAL FIELD DEFECT [None]
  - VISUAL IMPAIRMENT [None]
